FAERS Safety Report 4983428-0 (Version None)
Quarter: 2006Q2

REPORT INFORMATION
  Report Type: 
  Country: None (occurrence: None)
  Receive Date: 20060426
  Receipt Date: 20060208
  Transmission Date: 20061013
  Serious: Yes (Hospitalization, Other)
  Sender: FDA-Public Use
  Company Number: US-MERCK-0602USA02594

PATIENT
  Age: 69 Year
  Sex: Female
  Weight: 79 kg

DRUGS (24)
  1. DAPSONE [Concomitant]
     Route: 065
  2. FUROSEMIDE [Concomitant]
     Indication: HYPERTENSION
     Route: 065
     Dates: start: 20020723
  3. FUROSEMIDE [Concomitant]
     Indication: OEDEMA PERIPHERAL
     Route: 065
     Dates: start: 20020723
  4. TRAMADOL HYDROCHLORIDE [Concomitant]
     Indication: PAIN
     Route: 065
     Dates: start: 20030110, end: 20040614
  5. FLUOXETINE HYDROCHLORIDE [Concomitant]
     Route: 065
  6. DIFLUCAN [Concomitant]
     Route: 065
  7. PROZAC [Concomitant]
     Route: 065
  8. POTASSIUM CHLORIDE [Concomitant]
     Route: 065
  9. DETROL LA [Concomitant]
     Route: 065
  10. DIOVAN [Concomitant]
     Indication: HYPERTENSION
     Route: 065
     Dates: start: 20020924, end: 20040831
  11. PROTONIX [Concomitant]
     Route: 065
  12. ALPRAZOLAM [Concomitant]
     Route: 065
  13. ZOCOR [Concomitant]
     Indication: BLOOD CHOLESTEROL INCREASED
     Route: 048
     Dates: start: 20030305
  14. VIOXX [Suspect]
     Indication: ARTHRITIS
     Route: 048
     Dates: start: 20001219
  15. VIOXX [Suspect]
     Route: 048
     Dates: end: 20041004
  16. VIOXX [Suspect]
     Indication: OSTEOARTHRITIS
     Route: 048
     Dates: start: 20001219
  17. VIOXX [Suspect]
     Route: 048
     Dates: end: 20041004
  18. PLAVIX [Concomitant]
     Indication: MYOCARDIAL INFARCTION
     Route: 065
     Dates: start: 20000103
  19. PLAVIX [Concomitant]
     Indication: CHEST PAIN
     Route: 065
     Dates: start: 20000103
  20. LORAZEPAM [Concomitant]
     Route: 065
  21. HYDROXYCHLOROQUINE SULFATE [Concomitant]
     Indication: PAIN
     Route: 065
     Dates: start: 20001002
  22. PREDNISONE [Concomitant]
     Indication: PAIN
     Route: 065
     Dates: start: 20001130, end: 20040407
  23. SYNTHROID [Concomitant]
     Route: 065
  24. PRILOSEC [Concomitant]
     Route: 065

REACTIONS (14)
  - AMNESIA [None]
  - ANXIETY [None]
  - AORTIC ANEURYSM [None]
  - BLOOD POTASSIUM DECREASED [None]
  - CEREBROVASCULAR ACCIDENT [None]
  - CORONARY ARTERY DISEASE [None]
  - DEPRESSION [None]
  - DRUG ADMINISTRATION ERROR [None]
  - DRY EYE [None]
  - DYSPNOEA [None]
  - FUNGAL INFECTION [None]
  - GASTRIC DISORDER [None]
  - MYOCARDIAL INFARCTION [None]
  - SOMNOLENCE [None]
